FAERS Safety Report 15933674 (Version 2)
Quarter: 2019Q1

REPORT INFORMATION
  Report Type: Spontaneous
  Country: US (occurrence: US)
  Receive Date: 20190207
  Receipt Date: 20190225
  Transmission Date: 20190417
  Serious: Yes (Hospitalization, Other)
  Sender: FDA-Public Use
  Company Number: US-JNJFOC-20190138046

PATIENT
  Age: 19 Year
  Sex: Female

DRUGS (2)
  1. PALIPERIDONE. [Suspect]
     Active Substance: PALIPERIDONE
     Indication: AGITATION
     Route: 048
  2. HALOPERIDOL. [Suspect]
     Active Substance: HALOPERIDOL
     Indication: AGITATION
     Route: 030

REACTIONS (3)
  - Pyrexia [Recovering/Resolving]
  - Catatonia [Recovering/Resolving]
  - Leukocytosis [Recovering/Resolving]
